FAERS Safety Report 23354425 (Version 1)
Quarter: 2024Q1

REPORT INFORMATION
  Report Type: Other
  Country: GB (occurrence: GB)
  Receive Date: 20240101
  Receipt Date: 20240101
  Transmission Date: 20240409
  Serious: Yes (Other)
  Sender: FDA-Public Use
  Company Number: None

PATIENT

DRUGS (1)
  1. SOLIFENACIN SUCCINATE [Suspect]
     Active Substance: SOLIFENACIN SUCCINATE
     Indication: Adverse drug reaction
     Dosage: 10 MILLIGRAM, BID
     Route: 065
     Dates: start: 2023

REACTIONS (6)
  - Blood glucose increased [Recovering/Resolving]
  - Visual impairment [Recovering/Resolving]
  - Thirst [Recovered/Resolved]
  - Polydipsia [Recovered/Resolved]
  - Dry mouth [Recovered/Resolved]
  - Malaise [Unknown]

NARRATIVE: CASE EVENT DATE: 20230901
